FAERS Safety Report 14753718 (Version 1)
Quarter: 2018Q2

REPORT INFORMATION
  Report Type: Report from Study
  Country: IN (occurrence: IN)
  Receive Date: 20180412
  Receipt Date: 20180412
  Transmission Date: 20180711
  Serious: Yes (Other)
  Sender: FDA-Public Use
  Company Number: IN-MYLANLABS-2018M1023350

PATIENT
  Age: 9 Year
  Sex: Male

DRUGS (1)
  1. TRETINOIN. [Suspect]
     Active Substance: TRETINOIN
     Indication: PRODUCT USED FOR UNKNOWN INDICATION
     Route: 065

REACTIONS (1)
  - Drug-induced liver injury [Recovered/Resolved]

NARRATIVE: CASE EVENT DATE: 201504
